FAERS Safety Report 4371365-4 (Version None)
Quarter: 2004Q2

REPORT INFORMATION
  Report Type: 
  Country: None (occurrence: None)
  Receive Date: 20040601
  Receipt Date: 20040521
  Transmission Date: 20050107
  Serious: Yes (Hospitalization)
  Sender: FDA-Public Use
  Company Number: US-JNJFOC-20040505437

PATIENT
  Age: 34 Year
  Sex: Female

DRUGS (7)
  1. DURAGESIC [Suspect]
     Indication: PAIN
     Dosage: 150 UG/HR, 1 IN 72 HR, TRANSDERMAL;  100 UG/HR, 1 IN 72 HOUR, TRANSDERMAL
     Route: 062
     Dates: start: 20040504, end: 20040518
  2. DURAGESIC [Suspect]
     Indication: PAIN
     Dosage: 150 UG/HR, 1 IN 72 HR, TRANSDERMAL;  100 UG/HR, 1 IN 72 HOUR, TRANSDERMAL
     Route: 062
     Dates: start: 20040518
  3. GABITRIL [Concomitant]
  4. EFFEXOR [Concomitant]
  5. WELLBUTRIN [Concomitant]
  6. HYDROCODONE (HYDROCODONE) [Concomitant]
  7. SOMA [Concomitant]

REACTIONS (3)
  - BLISTER [None]
  - CONVULSION [None]
  - THERMAL BURN [None]
